FAERS Safety Report 9432307 (Version 1)
Quarter: 2013Q3

REPORT INFORMATION
  Report Type: Spontaneous
  Country: US (occurrence: US)
  Receive Date: 20130729
  Receipt Date: 20130729
  Transmission Date: 20140515
  Serious: Yes (Other)
  Sender: FDA-Public Use
  Company Number: US-JNJFOC-20130714446

PATIENT
  Sex: 0

DRUGS (4)
  1. DECITABINE (DECITABINE) LYOPHILIZED POWDER [Suspect]
     Indication: MYELOID LEUKAEMIA
     Route: 042
  2. DAUNORUBICIN [Suspect]
     Indication: MYELOID LEUKAEMIA
  3. CYTARABINE (CYTARABINE) [Suspect]
     Indication: MYELOID LEUKAEMIA
  4. ETOPOSIDE (ETOPOSIDE) [Suspect]
     Indication: MYELOID LEUKAEMIA

REACTIONS (4)
  - Neutropenia [None]
  - Thrombocytopenia [None]
  - Appendicitis [None]
  - Large intestine perforation [None]
